FAERS Safety Report 4316318-7 (Version None)
Quarter: 2004Q1

REPORT INFORMATION
  Report Type: 
  Country: None (occurrence: None)
  Receive Date: 20040311
  Receipt Date: 20040302
  Transmission Date: 20041129
  Serious: Yes (Hospitalization, Other)
  Sender: FDA-Public Use
  Company Number: 2004003560

PATIENT
  Age: 70 Year
  Sex: Male

DRUGS (3)
  1. TAHOR (ATORVASTATIN) [Suspect]
     Indication: HYPERCHOLESTEROLAEMIA
     Dosage: 10 MG (DAILY), ORAL
     Route: 048
     Dates: start: 19980501, end: 20040201
  2. CHONDROITIN SULFATE  (CHONDROITIN SULFATE) [Concomitant]
  3. POTASSIUM CHLORIDE [Concomitant]

REACTIONS (8)
  - ABDOMINAL HERNIA [None]
  - BRONCHIECTASIS [None]
  - BRONCHITIS [None]
  - INTERSTITIAL LUNG DISEASE [None]
  - LUNG CYST BENIGN [None]
  - OSTEOARTHRITIS [None]
  - PULMONARY FIBROSIS [None]
  - PULMONARY INTERSTITIAL EMPHYSEMA SYNDROME [None]
